FAERS Safety Report 8227594-2 (Version None)
Quarter: 2012Q1

REPORT INFORMATION
  Report Type: 
  Country: None (occurrence: None)
  Receive Date: 20120322
  Receipt Date: 20120319
  Transmission Date: 20120608
  Serious: Yes (Hospitalization, Other)
  Sender: FDA-Public Use
  Company Number: JP-PFIZER INC-2012072695

PATIENT
  Age: 40 Year
  Sex: Male

DRUGS (1)
  1. MEDROL [Suspect]
     Dosage: 8 MG, 1X/DAY IN THE MORNING
     Route: 048

REACTIONS (1)
  - ILEUS [None]
